FAERS Safety Report 23951538 (Version 1)
Quarter: 2024Q2

REPORT INFORMATION
  Report Type: Spontaneous
  Country: US (occurrence: None)
  Receive Date: 20240607
  Receipt Date: 20240607
  Transmission Date: 20240716
  Serious: Yes (Disabling, Other)
  Sender: FDA-Public Use
  Company Number: None

PATIENT
  Age: 66 Year
  Sex: Female
  Weight: 71.1 kg

DRUGS (14)
  1. TOPAMAX [Suspect]
     Active Substance: TOPIRAMATE
     Indication: Torticollis
     Dosage: OTHER QUANTITY : 4 TABLET(S)?FREQUENCY : EVERY 12 HOURS?
     Route: 048
     Dates: start: 20230901, end: 20240501
  2. ESCITALOPRAM [Suspect]
     Active Substance: ESCITALOPRAM OXALATE
  3. METOPROLOL [Concomitant]
     Active Substance: METOPROLOL
  4. GABAPENTIN [Concomitant]
     Active Substance: GABAPENTIN
  5. CLONAZEPAM [Concomitant]
     Active Substance: CLONAZEPAM
  6. LOSARTAN [Concomitant]
     Active Substance: LOSARTAN
  7. NAPROXEN [Concomitant]
     Active Substance: NAPROXEN
  8. MULTI [Concomitant]
  9. VITAMIN C [Concomitant]
     Active Substance: ASCORBIC ACID
  10. OMEGA 3 [Concomitant]
     Active Substance: CAPSAICIN
  11. COENZYME Q10 [Concomitant]
     Active Substance: DIETARY SUPPLEMENT\UBIDECARENONE
  12. LION MANE [Concomitant]
  13. GLUCOSAMINE [Concomitant]
     Active Substance: GLUCOSAMINE
  14. ASPIRIN [Concomitant]
     Active Substance: ASPIRIN

REACTIONS (8)
  - Anxiety [None]
  - Depression [None]
  - Confusional state [None]
  - Memory impairment [None]
  - Burning sensation [None]
  - Insomnia [None]
  - Suicidal ideation [None]
  - Psychotic disorder [None]

NARRATIVE: CASE EVENT DATE: 20231012
